FAERS Safety Report 9504259 (Version 1)
Quarter: 2013Q3

REPORT INFORMATION
  Report Type: Report from Study
  Country: RU (occurrence: RU)
  Receive Date: 20130906
  Receipt Date: 20130906
  Transmission Date: 20140515
  Serious: Yes (Hospitalization)
  Sender: FDA-Public Use
  Company Number: RU-GLAXOSMITHKLINE-B0920774A

PATIENT
  Age: 55 Year
  Sex: Male
  Weight: 86 kg

DRUGS (16)
  1. OMACOR [Suspect]
     Indication: MYOCARDIAL INFARCTION
     Dosage: 1000MG PER DAY
     Route: 048
     Dates: end: 20130713
  2. ASPIRIN [Concomitant]
     Dosage: 100MG PER DAY
     Route: 048
     Dates: start: 20121208
  3. CLOPIDOGREL [Concomitant]
     Dosage: 75MG PER DAY
     Route: 048
     Dates: start: 20121208, end: 20130713
  4. ATORVASTATIN [Concomitant]
     Dosage: 20MG PER DAY
     Route: 048
     Dates: start: 20121208, end: 20130301
  5. BISOPROLOL [Concomitant]
     Dosage: 5MG PER DAY
     Route: 048
     Dates: start: 20121208, end: 20130303
  6. BISOPROLOL [Concomitant]
     Dosage: 5MG PER DAY
     Route: 048
     Dates: start: 20130807
  7. PERINDOPRIL [Concomitant]
     Dosage: 5MG PER DAY
     Route: 048
     Dates: start: 20120206, end: 20130301
  8. ENALAPRIL [Concomitant]
     Dosage: 10MG TWICE PER DAY
     Route: 048
     Dates: start: 20121208, end: 20130602
  9. AMLODIPIN [Concomitant]
     Dosage: 5MG PER DAY
     Route: 048
     Dates: start: 20130408
  10. INDAPAMID [Concomitant]
     Dosage: 1.5MG PER DAY
     Route: 048
     Dates: start: 20130301, end: 20130701
  11. ROSUVASTATIN [Concomitant]
     Dosage: 10MG PER DAY
     Route: 048
     Dates: start: 20130301
  12. ZOFENOPRIL [Concomitant]
     Dosage: 30MG PER DAY
     Route: 048
     Dates: start: 20130301
  13. ISOSORBIDE MONONITRATE [Concomitant]
     Dosage: 40MG PER DAY
     Route: 048
     Dates: start: 20130214
  14. METFORMIN [Concomitant]
     Dosage: 500MG PER DAY
     Route: 048
     Dates: start: 20130408
  15. CARVEDILOL [Concomitant]
     Dosage: 25MG TWICE PER DAY
     Route: 048
     Dates: start: 20130301, end: 20130701
  16. HEPARIN [Concomitant]
     Dosage: 5000IU TWICE PER DAY
     Route: 048
     Dates: start: 20130807, end: 20130812

REACTIONS (2)
  - Angina unstable [Recovered/Resolved]
  - Hypertension [Recovered/Resolved]
